FAERS Safety Report 9663848 (Version 1)
Quarter: 2013Q4

REPORT INFORMATION
  Report Type: Spontaneous
  Country: GB (occurrence: GB)
  Receive Date: 20131101
  Receipt Date: 20131101
  Transmission Date: 20140711
  Serious: Yes (Disabling)
  Sender: FDA-Public Use
  Company Number: GB-TEVA-439970ISR

PATIENT
  Age: 87 Year
  Sex: Female

DRUGS (3)
  1. AMIODARONE [Suspect]
     Indication: SUPRAVENTRICULAR TACHYCARDIA
     Route: 048
  2. PREDNISOLONE [Concomitant]
  3. ANASTROZOLE [Concomitant]

REACTIONS (1)
  - Optic atrophy [Not Recovered/Not Resolved]
